FAERS Safety Report 10842063 (Version 1)
Quarter: 2015Q1

REPORT INFORMATION
  Report Type: Report from Study
  Country: US (occurrence: US)
  Receive Date: 20150220
  Receipt Date: 20150220
  Transmission Date: 20150721
  Serious: No
  Sender: FDA-Public Use
  Company Number: US-ABBVIE-14P-163-1265562-00

PATIENT
  Sex: Female
  Weight: 81.72 kg

DRUGS (11)
  1. SULFASALAZINE. [Concomitant]
     Active Substance: SULFASALAZINE
     Indication: SAPHO SYNDROME
  2. HUMIRA [Suspect]
     Active Substance: ADALIMUMAB
     Indication: SAPHO SYNDROME
     Route: 058
     Dates: start: 20091025
  3. VITAMIN B3 [Concomitant]
     Active Substance: NIACIN
     Indication: VITAMIN SUPPLEMENTATION
  4. LOVAZA [Concomitant]
     Active Substance: OMEGA-3-ACID ETHYL ESTERS
     Indication: BLOOD TRIGLYCERIDES INCREASED
  5. ENALAPRIL [Concomitant]
     Active Substance: ENALAPRIL
     Indication: HYPERTENSION
  6. MORPHINE [Concomitant]
     Active Substance: MORPHINE
     Indication: SAPHO SYNDROME
  7. HUMIRA [Suspect]
     Active Substance: ADALIMUMAB
     Indication: OFF LABEL USE
  8. METHOTREXATE [Concomitant]
     Active Substance: METHOTREXATE
     Indication: SAPHO SYNDROME
     Dosage: 6 TABLETS WEEKLY
  9. FOLIC ACID. [Concomitant]
     Active Substance: FOLIC ACID
     Indication: VITAMIN SUPPLEMENTATION
  10. VITAMIN B12 [Concomitant]
     Active Substance: CYANOCOBALAMIN
     Indication: VITAMIN SUPPLEMENTATION
  11. B6 [Concomitant]
     Active Substance: PYRIDOXINE HYDROCHLORIDE
     Indication: VITAMIN SUPPLEMENTATION

REACTIONS (7)
  - Blister [Not Recovered/Not Resolved]
  - Drug effect decreased [Not Recovered/Not Resolved]
  - Therapeutic response unexpected [Recovered/Resolved]
  - Neuropathy peripheral [Not Recovered/Not Resolved]
  - Chest pain [Not Recovered/Not Resolved]
  - Off label use [Not Recovered/Not Resolved]
  - SAPHO syndrome [Unknown]

NARRATIVE: CASE EVENT DATE: 2012
